FAERS Safety Report 6730703-5 (Version None)
Quarter: 2010Q2

REPORT INFORMATION
  Report Type: 
  Country: None (occurrence: None)
  Receive Date: 20100518
  Receipt Date: 20100512
  Transmission Date: 20101027
  Serious: Yes (Other)
  Sender: FDA-Public Use
  Company Number: US-ELI_LILLY_AND_COMPANY-US201005003573

PATIENT
  Sex: Female

DRUGS (3)
  1. HUMALOG [Suspect]
     Indication: DIABETES MELLITUS
     Dosage: UNK, AS NEEDED
  2. LIPITOR [Concomitant]
  3. LANTUS [Concomitant]
     Dosage: 18 U, EACH EVENING

REACTIONS (3)
  - EYE HAEMORRHAGE [None]
  - FOOT FRACTURE [None]
  - RETINOPATHY [None]
